FAERS Safety Report 23371897 (Version 3)
Quarter: 2024Q1

REPORT INFORMATION
  Report Type: Spontaneous
  Country: US (occurrence: US)
  Receive Date: 20240105
  Receipt Date: 20240328
  Transmission Date: 20240410
  Serious: Yes (Hospitalization)
  Sender: FDA-Public Use
  Company Number: US-PFIZER INC-PV202400002239

PATIENT
  Age: 87 Year
  Sex: Female
  Weight: 54.422 kg

DRUGS (1)
  1. IBRANCE [Suspect]
     Active Substance: PALBOCICLIB
     Indication: Breast cancer female
     Dosage: 125 MG ONCE A DAY 3 WEEKS ON 1 WEEK OFF
     Dates: start: 2019

REACTIONS (4)
  - Fall [Unknown]
  - Hip fracture [Unknown]
  - Pelvic fracture [Not Recovered/Not Resolved]
  - Diarrhoea [Unknown]
